FAERS Safety Report 18156380 (Version 1)
Quarter: 2020Q3

REPORT INFORMATION
  Report Type: Spontaneous
  Country: US (occurrence: US)
  Receive Date: 20200817
  Receipt Date: 20200817
  Transmission Date: 20201103
  Serious: No
  Sender: FDA-Public Use
  Company Number: None

PATIENT
  Age: 85 Year
  Sex: 0

DRUGS (1)
  1. OFEV [Suspect]
     Active Substance: NINTEDANIB
     Indication: IDIOPATHIC PULMONARY FIBROSIS
     Route: 048
     Dates: start: 20200127

REACTIONS (4)
  - Respiratory failure [None]
  - Cyanosis [None]
  - Pneumonia [None]
  - Hypoxia [None]

NARRATIVE: CASE EVENT DATE: 20200811
